FAERS Safety Report 7330974-0 (Version None)
Quarter: 2011Q1

REPORT INFORMATION
  Report Type: 
  Country: None (occurrence: None)
  Receive Date: 20110304
  Receipt Date: 20110225
  Transmission Date: 20110831
  Serious: Yes (Hospitalization)
  Sender: FDA-Public Use
  Company Number: DE-US-EMD SERONO, INC.-7030346

PATIENT
  Sex: Female
  Weight: 53 kg

DRUGS (3)
  1. REBIF [Suspect]
     Route: 058
     Dates: start: 20100917, end: 20101213
  2. IBUPROFEN [Concomitant]
     Indication: PROPHYLAXIS
     Route: 048
  3. REBIF [Suspect]
     Indication: MULTIPLE SCLEROSIS
     Route: 058
     Dates: end: 20100917

REACTIONS (2)
  - ERYTHEMA [None]
  - GASTROINTESTINAL HAEMORRHAGE [None]
